FAERS Safety Report 8367576-3 (Version None)
Quarter: 2012Q2

REPORT INFORMATION
  Report Type: 
  Country: None (occurrence: None)
  Receive Date: 20120517
  Receipt Date: 20120514
  Transmission Date: 20120825
  Serious: Yes (Other)
  Sender: FDA-Public Use
  Company Number: JP-PFIZER INC-2012090553

PATIENT
  Age: 60 Year
  Sex: Female

DRUGS (4)
  1. LOXONIN [Concomitant]
     Indication: PAIN IN EXTREMITY
     Dosage: 20 MG, AS NEEDED
     Route: 048
     Dates: start: 20100101
  2. LYRICA [Suspect]
     Dosage: 100 MG, 1X/DAY
     Route: 048
     Dates: start: 20111120
  3. LYRICA [Suspect]
     Indication: HERNIA PAIN
     Dosage: 75 MG, 1X/DAY
     Route: 048
     Dates: start: 20110727, end: 20111119
  4. CLEAMINE [Concomitant]
     Indication: HEADACHE
     Dosage: 1.0 MG, ONE OR TWO TIMES/DAY
     Route: 048

REACTIONS (4)
  - DISTURBANCE IN ATTENTION [None]
  - DIZZINESS [None]
  - ROAD TRAFFIC ACCIDENT [None]
  - SOMNOLENCE [None]
